FAERS Safety Report 7342076-8 (Version None)
Quarter: 2011Q1

REPORT INFORMATION
  Report Type: 
  Country: None (occurrence: None)
  Receive Date: 20110309
  Receipt Date: 20110228
  Transmission Date: 20110831
  Serious: Yes (Disabling, Congenital Anomaly)
  Sender: FDA-Public Use
  Company Number: BR-ASTRAZENECA-2011SE11380

PATIENT
  Age: 4 Year
  Sex: Male

DRUGS (1)
  1. ZOLADEX [Suspect]
     Indication: LEIOMYOMA
     Route: 064
     Dates: start: 20070101

REACTIONS (1)
  - MUTISM [None]
